FAERS Safety Report 7928357-5 (Version None)
Quarter: 2011Q4

REPORT INFORMATION
  Report Type: 
  Country: None (occurrence: None)
  Receive Date: 20111118
  Receipt Date: 20111116
  Transmission Date: 20120403
  Serious: Yes (Death, Hospitalization)
  Sender: FDA-Public Use
  Company Number: PHHY2011JP90520

PATIENT
  Age: 60 Year
  Sex: Male

DRUGS (1)
  1. IRINOTECAN HCL [Suspect]

REACTIONS (5)
  - INTERSTITIAL LUNG DISEASE [None]
  - PNEUMOTHORAX [None]
  - CHEST PAIN [None]
  - RALES [None]
  - DYSPNOEA [None]
